FAERS Safety Report 7365566-0 (Version None)
Quarter: 2011Q1

REPORT INFORMATION
  Report Type: 
  Country: None (occurrence: None)
  Receive Date: 20110322
  Receipt Date: 20090925
  Transmission Date: 20110831
  Serious: Yes (Other)
  Sender: FDA-Public Use
  Company Number: US-BAYER-200934765NA

PATIENT
  Sex: Male

DRUGS (15)
  1. METHOTREXATE [Concomitant]
  2. TRASYLOL [Suspect]
     Indication: CORONARY ARTERY BYPASS
     Dosage: UNK
     Route: 042
     Dates: start: 20040303
  3. FOSPHENYTOIN [Concomitant]
  4. LEVOPHED [Concomitant]
     Dosage: UNK
     Dates: start: 20040304
  5. INSULIN [Concomitant]
  6. EFFEXOR [Concomitant]
  7. DILANTIN [Concomitant]
  8. NORVASC [Concomitant]
     Indication: PRODUCT USED FOR UNKNOWN INDICATION
     Dosage: 7.5MG DAILY
  9. METOPROLOL [Concomitant]
     Indication: PRODUCT USED FOR UNKNOWN INDICATION
     Dosage: 25 MG DAILY
  10. AMIODARONE HCL [Concomitant]
  11. TRASYLOL [Suspect]
     Indication: BIOPSY LUNG
  12. TRASYLOL [Suspect]
     Indication: LUNG OPERATION
  13. LESCOL [Concomitant]
  14. VOLTAREN [Concomitant]
  15. CEPHALOSPORIN C [Concomitant]

REACTIONS (12)
  - UNEVALUABLE EVENT [None]
  - FEAR [None]
  - EMOTIONAL DISTRESS [None]
  - ANHEDONIA [None]
  - NERVOUSNESS [None]
  - ANXIETY [None]
  - INJURY [None]
  - DEPRESSION [None]
  - PAIN [None]
  - MULTI-ORGAN FAILURE [None]
  - RENAL FAILURE [None]
  - RENAL INJURY [None]
